FAERS Safety Report 19132848 (Version 3)
Quarter: 2021Q2

REPORT INFORMATION
  Report Type: Spontaneous
  Country: US (occurrence: US)
  Receive Date: 20210413
  Receipt Date: 20210608
  Transmission Date: 20210717
  Serious: No
  Sender: FDA-Public Use
  Company Number: US-ALXN-A202104442

PATIENT
  Sex: Female

DRUGS (1)
  1. SOLIRIS [Suspect]
     Active Substance: ECULIZUMAB
     Indication: NEUROMYELITIS OPTICA SPECTRUM DISORDER
     Dosage: UNK
     Route: 065

REACTIONS (2)
  - Joint swelling [Unknown]
  - Blood pressure increased [Unknown]

NARRATIVE: CASE EVENT DATE: 202104
